FAERS Safety Report 7454532-2 (Version None)
Quarter: 2011Q2

REPORT INFORMATION
  Report Type: 
  Country: None (occurrence: None)
  Receive Date: 20110503
  Receipt Date: 20110421
  Transmission Date: 20111010
  Serious: Yes (Other)
  Sender: FDA-Public Use
  Company Number: CA-ELI_LILLY_AND_COMPANY-CA201104007174

PATIENT
  Age: 88 Year
  Sex: Male

DRUGS (1)
  1. EFFIENT [Suspect]

REACTIONS (1)
  - CORONARY ARTERY RESTENOSIS [None]
